FAERS Safety Report 5261505-7 (Version None)
Quarter: 2007Q1

REPORT INFORMATION
  Report Type: 
  Country: None (occurrence: None)
  Receive Date: 20070308
  Receipt Date: 20070220
  Transmission Date: 20070707
  Serious: Yes (Hospitalization)
  Sender: FDA-Public Use
  Company Number: 2007VX000640

PATIENT
  Age: 81 Year
  Sex: Male

DRUGS (9)
  1. MESTINON [Suspect]
     Indication: MYASTHENIA GRAVIS
     Dosage: 60 MG; PRN
  2. PREDNISONE TAB [Suspect]
     Indication: HERPES ZOSTER
     Dosage: PO
     Route: 048
  3. XOPENEX [Concomitant]
  4. SINGULAIR [Concomitant]
  5. ZOCOR ^DIEKMANN^ [Concomitant]
  6. DILTIAZEM [Concomitant]
  7. WARFARIN SODIUM [Concomitant]
  8. DUTASTERIDE [Concomitant]
  9. FUROSEMIDE [Concomitant]

REACTIONS (3)
  - BLOOD GLUCOSE INCREASED [None]
  - CONDITION AGGRAVATED [None]
  - HERPES ZOSTER [None]
